FAERS Safety Report 5601530-7 (Version None)
Quarter: 2008Q1

REPORT INFORMATION
  Report Type: 
  Country: None (occurrence: None)
  Receive Date: 20080124
  Receipt Date: 20080118
  Transmission Date: 20080703
  Serious: Yes (Other)
  Sender: FDA-Public Use
  Company Number: JP-AVENTIS-200810147JP

PATIENT
  Age: 73 Year
  Sex: Female

DRUGS (2)
  1. LASIX [Suspect]
  2. ANTINEOPLASTIC AGENTS [Concomitant]

REACTIONS (1)
  - LEUKOENCEPHALOPATHY [None]
